FAERS Safety Report 4411998-X (Version None)
Quarter: 2004Q3

REPORT INFORMATION
  Report Type: 
  Country: None (occurrence: None)
  Receive Date: 20040730
  Receipt Date: 20040727
  Transmission Date: 20050211
  Serious: Yes (Life-Threatening, Hospitalization)
  Sender: FDA-Public Use
  Company Number: PHRM2004FR02431

PATIENT
  Age: 67 Year
  Sex: Male

DRUGS (8)
  1. VOLTAREN [Suspect]
     Route: 048
     Dates: end: 20031124
  2. NISIS [Suspect]
     Indication: HYPERTENSION
     Route: 048
     Dates: end: 20031124
  3. ACEBUTOLOL [Concomitant]
     Route: 048
     Dates: end: 20031124
  4. OMIX [Concomitant]
     Indication: BENIGN NEOPLASM OF PROSTATE
     Route: 048
     Dates: end: 20031124
  5. METFORMIN HCL [Concomitant]
     Indication: DIABETES MELLITUS
     Route: 048
     Dates: end: 20031124
  6. NITRIDERM TTS [Concomitant]
     Route: 062
     Dates: end: 20031124
  7. PROPOFOL [Concomitant]
     Route: 048
     Dates: end: 20031124
  8. STILNOX [Concomitant]
     Route: 048
     Dates: end: 20031124

REACTIONS (9)
  - ANURIA [None]
  - BLOOD CREATININE INCREASED [None]
  - BLOOD PRESSURE SYSTOLIC DECREASED [None]
  - CONCOMITANT DISEASE AGGRAVATED [None]
  - HAEMODIALYSIS [None]
  - HYPERKALAEMIA [None]
  - HYPOTENSION [None]
  - RENAL FAILURE ACUTE [None]
  - ROAD TRAFFIC ACCIDENT [None]
